FAERS Safety Report 5043267-1 (Version None)
Quarter: 2006Q3

REPORT INFORMATION
  Report Type: 
  Country: None (occurrence: None)
  Receive Date: 20060703
  Receipt Date: 20060703
  Transmission Date: 20061208
  Serious: Yes (Hospitalization, Disabling, Other)
  Sender: FDA-Public Use
  Company Number: None

PATIENT
  Age: 63 Year
  Sex: Female
  Weight: 59.8748 kg

DRUGS (10)
  1. REMICADE [Suspect]
     Indication: RHEUMATOID ARTHRITIS
     Dosage: 500 MG Q6WEEKS IV
     Route: 042
     Dates: start: 20050922, end: 20060502
  2. ACTONEL [Concomitant]
  3. CELEBREX [Concomitant]
  4. PLAQUENIL [Concomitant]
  5. FOLIC ACID [Concomitant]
  6. LIPITOR [Concomitant]
  7. METHOTREXATE [Concomitant]
  8. PREMARIN [Concomitant]
  9. OXYCONTIN [Concomitant]
  10. TRAZODONE HCL [Concomitant]

REACTIONS (7)
  - ABASIA [None]
  - HYPOAESTHESIA [None]
  - MYELITIS TRANSVERSE [None]
  - NERVOUS SYSTEM DISORDER [None]
  - SENSORY LOSS [None]
  - THERAPY NON-RESPONDER [None]
  - WALKING AID USER [None]
